FAERS Safety Report 14673434 (Version 1)
Quarter: 2018Q1

REPORT INFORMATION
  Report Type: Report from Study
  Country: IT (occurrence: IT)
  Receive Date: 20180323
  Receipt Date: 20180323
  Transmission Date: 20180509
  Serious: Yes (Hospitalization)
  Sender: FDA-Public Use
  Company Number: IT-PFIZER INC-2018119311

PATIENT
  Age: 71 Year
  Sex: Female

DRUGS (5)
  1. KANRENOL [Concomitant]
     Active Substance: CANRENOATE POTASSIUM
     Dosage: UNK
  2. MEDROL [Suspect]
     Active Substance: METHYLPREDNISOLONE
     Indication: PEMPHIGUS
     Dosage: 16 MG, 1X/DAY
     Route: 048
     Dates: start: 20170101, end: 20170709
  3. LANSOX [Concomitant]
     Active Substance: LANSOPRAZOLE
     Dosage: UNK
  4. DEURSIL [Concomitant]
     Active Substance: URSODIOL
     Dosage: UNK
  5. LYRICA [Concomitant]
     Active Substance: PREGABALIN
     Dosage: UNK

REACTIONS (2)
  - Arthralgia [Unknown]
  - Groin pain [Unknown]

NARRATIVE: CASE EVENT DATE: 20170709
